FAERS Safety Report 5841847-4 (Version None)
Quarter: 2008Q3

REPORT INFORMATION
  Report Type: 
  Country: None (occurrence: None)
  Receive Date: 20080812
  Receipt Date: 20080730
  Transmission Date: 20090109
  Serious: Yes (Hospitalization)
  Sender: FDA-Public Use
  Company Number: PHHO2008BR09421

PATIENT
  Sex: Male
  Weight: 68.9 kg

DRUGS (2)
  1. TEGRETOL [Suspect]
     Indication: CONVULSION
     Dosage: 400 MG, BID
     Route: 048
     Dates: start: 19940601
  2. CERTICAN [Interacting]
     Indication: RENAL TRANSPLANT
     Dosage: 2 MG, DAILY
     Route: 048
     Dates: start: 20070704

REACTIONS (3)
  - DRUG INTERACTION [None]
  - HYPOMAGNESAEMIA [None]
  - HYPONATRAEMIA [None]
